FAERS Safety Report 4789446-X (Version None)
Quarter: 2005Q4

REPORT INFORMATION
  Report Type: 
  Country: None (occurrence: None)
  Receive Date: 20051004
  Receipt Date: 20051004
  Transmission Date: 20060501
  Serious: No
  Sender: FDA-Public Use
  Company Number: None

PATIENT
  Sex: Female

DRUGS (11)
  1. HUMULIN 70/30 [Suspect]
     Indication: DIABETES MELLITUS
     Dosage: 44 UNITS G AM/26 UNITS G PMSQ
     Route: 058
  2. BUMETANIDE [Concomitant]
  3. ASPIRIN [Concomitant]
  4. ERODOLAC [Concomitant]
  5. FLUOXETINE [Concomitant]
  6. FUROSEMIDE [Concomitant]
  7. LISINOPRIL [Concomitant]
  8. METOLAZONE [Concomitant]
  9. VALSARTAN [Concomitant]
  10. MONTELUKAST [Concomitant]
  11. CETIRIZINE HCL [Concomitant]

REACTIONS (4)
  - ASTHENIA [None]
  - BLOOD GLUCOSE INCREASED [None]
  - DRUG DOSE OMISSION [None]
  - TREATMENT NONCOMPLIANCE [None]
